FAERS Safety Report 15183354 (Version 1)
Quarter: 2018Q3

REPORT INFORMATION
  Report Type: Spontaneous
  Country: US (occurrence: US)
  Receive Date: 20180625
  Receipt Date: 20180625
  Transmission Date: 20181010
  Serious: Yes (Hospitalization)
  Sender: FDA-Public Use
  Company Number: None

PATIENT
  Age: 68 Year
  Sex: Male
  Weight: 98 kg

DRUGS (2)
  1. APIXABAN [Suspect]
     Active Substance: APIXABAN
     Route: 048
     Dates: start: 20170920, end: 20180205
  2. MELOXICAM. [Suspect]
     Active Substance: MELOXICAM
     Route: 048
     Dates: start: 20160131, end: 20180205

REACTIONS (8)
  - Hypotension [None]
  - Gastric haemorrhage [None]
  - Melaena [None]
  - Haemoglobin decreased [None]
  - Gastrointestinal haemorrhage [None]
  - Anaemia [None]
  - Duodenal ulcer [None]
  - Tachycardia [None]

NARRATIVE: CASE EVENT DATE: 20180205
